FAERS Safety Report 8428025-X (Version None)
Quarter: 2012Q2

REPORT INFORMATION
  Report Type: 
  Country: None (occurrence: None)
  Receive Date: 20120611
  Receipt Date: 20120601
  Transmission Date: 20120825
  Serious: Yes (Other)
  Sender: FDA-Public Use
  Company Number: US-ELI_LILLY_AND_COMPANY-US201206000445

PATIENT
  Sex: Female

DRUGS (1)
  1. BYDUREON [Suspect]
     Dosage: 2 MG, WEEKLY (1/W)
     Route: 058
     Dates: start: 20120501

REACTIONS (4)
  - NODULE [None]
  - CONSTIPATION [None]
  - RECTAL HAEMORRHAGE [None]
  - RECTAL FISSURE [None]
